FAERS Safety Report 8361838-1 (Version None)
Quarter: 2012Q2

REPORT INFORMATION
  Report Type: 
  Country: None (occurrence: None)
  Receive Date: 20120515
  Receipt Date: 20120504
  Transmission Date: 20120825
  Serious: Yes (Other)
  Sender: FDA-Public Use
  Company Number: US-JNJFOC-20120506760

PATIENT
  Sex: Female
  Weight: 89.36 kg

DRUGS (7)
  1. REMICADE [Suspect]
     Route: 042
     Dates: start: 20101001
  2. METFORMIN HCL [Concomitant]
     Indication: DIABETES MELLITUS
     Dosage: ONE IN MORNING AND ONE IN EVENING
     Route: 065
  3. LEVONOR [Concomitant]
     Indication: DIABETES MELLITUS
     Route: 048
  4. CYMBALTA [Suspect]
     Indication: PAIN
     Route: 048
  5. PREDNISONE [Concomitant]
     Indication: ARTHRITIS
     Dosage: ON SLIDING SCALE
     Route: 065
  6. REMICADE [Suspect]
     Indication: RHEUMATOID ARTHRITIS
     Route: 042
  7. REMICADE [Suspect]
     Route: 042
     Dates: start: 20120504

REACTIONS (4)
  - DRUG INEFFECTIVE [None]
  - BLOOD GLUCOSE INCREASED [None]
  - WEIGHT INCREASED [None]
  - FATIGUE [None]
